FAERS Safety Report 14563494 (Version 2)
Quarter: 2018Q2

REPORT INFORMATION
  Report Type: Report from Study
  Country: DE (occurrence: DE)
  Receive Date: 20180222
  Receipt Date: 20180612
  Transmission Date: 20180711
  Serious: Yes (Other)
  Sender: FDA-Public Use
  Company Number: PHHY2015DE148054

PATIENT
  Sex: Female

DRUGS (1)
  1. GILENYA [Suspect]
     Active Substance: FINGOLIMOD HYDROCHLORIDE
     Indication: MULTIPLE SCLEROSIS
     Dosage: UNK UNK, QD
     Route: 048
     Dates: start: 20140519

REACTIONS (7)
  - Lymphocyte count decreased [Unknown]
  - Alopecia [Recovered/Resolved]
  - Basophil count decreased [Unknown]
  - Atrioventricular block [Unknown]
  - Lymphopenia [Recovered/Resolved]
  - Monocyte count increased [Unknown]
  - White blood cell count decreased [Unknown]

NARRATIVE: CASE EVENT DATE: 20140519
